FAERS Safety Report 19660430 (Version 1)
Quarter: 2021Q3

REPORT INFORMATION
  Report Type: Spontaneous
  Country: GB (occurrence: GB)
  Receive Date: 20210805
  Receipt Date: 20210805
  Transmission Date: 20211014
  Serious: Yes (Life-Threatening, Other)
  Sender: FDA-Public Use
  Company Number: GB-ACCORD-234328

PATIENT
  Age: 23 Year
  Sex: Female
  Weight: 88.9 kg

DRUGS (1)
  1. TOPIRAMATE. [Suspect]
     Active Substance: TOPIRAMATE
     Indication: MIGRAINE
     Dosage: 25MG ONE A DAY INCREASING BY 25MG EACH WEEK UNTIL 100MG TWICE A DAY
     Route: 048
     Dates: start: 20200128, end: 20200228

REACTIONS (4)
  - Mental disorder [Recovered/Resolved]
  - Depression [Unknown]
  - Anger [Unknown]
  - Suicidal ideation [Unknown]

NARRATIVE: CASE EVENT DATE: 20200206
